FAERS Safety Report 16426432 (Version 2)
Quarter: 2019Q2

REPORT INFORMATION
  Report Type: Spontaneous
  Country: US (occurrence: US)
  Receive Date: 20190613
  Receipt Date: 20190618
  Transmission Date: 20190711
  Serious: Yes (Other)
  Sender: FDA-Public Use
  Company Number: US-PFIZER INC-2019247746

PATIENT
  Age: 67 Year
  Sex: Male
  Weight: 68.4 kg

DRUGS (5)
  1. FLOMAX [MORNIFLUMATE] [Concomitant]
     Active Substance: MORNIFLUMATE
     Indication: PROSTATOMEGALY
     Dosage: 0.4 MG, 1X/DAY
     Route: 048
  2. LYRICA [Suspect]
     Active Substance: PREGABALIN
     Indication: NEURALGIA
  3. PANTOPRAZOLE [Concomitant]
     Active Substance: PANTOPRAZOLE
     Indication: GASTROOESOPHAGEAL REFLUX DISEASE
     Dosage: 40 MG, 1X/DAY
     Route: 048
  4. OXYCODONE [Concomitant]
     Active Substance: OXYCODONE
     Indication: PAIN
     Dosage: 1 TO 2 TABLETS, 4X/DAY (10 MG, EVERY 6 HOURS)
     Route: 048
  5. LYRICA [Suspect]
     Active Substance: PREGABALIN
     Indication: HERPES ZOSTER
     Dosage: 75 MG, 2X/DAY
     Route: 048

REACTIONS (3)
  - Neoplasm malignant [Unknown]
  - Cancer pain [Not Recovered/Not Resolved]
  - Spinal cord neoplasm [Unknown]

NARRATIVE: CASE EVENT DATE: 2019
